FAERS Safety Report 5912271-0 (Version None)
Quarter: 2008Q4

REPORT INFORMATION
  Report Type: 
  Country: None (occurrence: None)
  Receive Date: 20081008
  Receipt Date: 20081002
  Transmission Date: 20090506
  Serious: Yes (Other)
  Sender: FDA-Public Use
  Company Number: D0058331A

PATIENT
  Age: 73 Year
  Sex: Female
  Weight: 65 kg

DRUGS (2)
  1. ZOFRAN [Suspect]
     Indication: VOMITING
     Route: 042
  2. METOPROLOL TARTRATE [Concomitant]
     Route: 042

REACTIONS (1)
  - RESPIRATORY ARREST [None]
